FAERS Safety Report 17172617 (Version 3)
Quarter: 2020Q1

REPORT INFORMATION
  Report Type: Spontaneous
  Country: NZ (occurrence: NZ)
  Receive Date: 20191218
  Receipt Date: 20200110
  Transmission Date: 20200409
  Serious: Yes (Other)
  Sender: FDA-Public Use
  Company Number: NZ-PFIZER INC-2019538853

PATIENT
  Age: 71 Year
  Sex: Male

DRUGS (1)
  1. OXALIPLATIN. [Suspect]
     Active Substance: OXALIPLATIN
     Indication: COLORECTAL CANCER
     Dosage: 85 MG/M2, CYCLIC (INFUSION)

REACTIONS (6)
  - Neurotoxicity [Unknown]
  - Muscle contractions involuntary [Unknown]
  - Paraesthesia [Unknown]
  - Muscle spasms [Unknown]
  - Decreased vibratory sense [Unknown]
  - Myotonia [Unknown]
